FAERS Safety Report 4381822-2 (Version None)
Quarter: 2004Q2

REPORT INFORMATION
  Report Type: 
  Country: None (occurrence: None)
  Receive Date: 20040615
  Receipt Date: 20040601
  Transmission Date: 20050107
  Serious: No
  Sender: FDA-Public Use
  Company Number: 2004SE02803

PATIENT
  Age: 74 Year
  Sex: Female

DRUGS (3)
  1. AMIAS 4MG TABLETS [Suspect]
     Indication: HYPERTENSION
     Dosage: DAILY DOSE: 4MG
     Dates: start: 20030517, end: 20040426
  2. BENDROFLUAZIDE [Suspect]
     Indication: HAEMOLYTIC ANAEMIA
     Dosage: DAILY DOSE: 2.5MG
     Dates: start: 19970129, end: 20040426
  3. CITALOPRAM [Concomitant]

REACTIONS (3)
  - HAEMOLYTIC ANAEMIA [None]
  - HYPONATRAEMIA [None]
  - TREATMENT NONCOMPLIANCE [None]
